FAERS Safety Report 12391548 (Version 1)
Quarter: 2016Q2

REPORT INFORMATION
  Report Type: Spontaneous
  Country: GB (occurrence: GB)
  Receive Date: 20160521
  Receipt Date: 20160521
  Transmission Date: 20160815
  Serious: Yes (Other)
  Sender: FDA-Public Use
  Company Number: GB-AUROBINDO-AUR-APL-2016-06056

PATIENT
  Sex: Female

DRUGS (1)
  1. GABAPENTIN 300MG [Suspect]
     Active Substance: GABAPENTIN
     Indication: PRODUCT USED FOR UNKNOWN INDICATION
     Dosage: 300 MG, FOUR TIMES/DAY
     Route: 048

REACTIONS (3)
  - Lip swelling [Unknown]
  - Mouth swelling [Unknown]
  - Pharyngeal oedema [Unknown]
